FAERS Safety Report 24416440 (Version 8)
Quarter: 2024Q4

REPORT INFORMATION
  Report Type: Spontaneous
  Country: DE (occurrence: DE)
  Receive Date: 20241009
  Receipt Date: 20241216
  Transmission Date: 20250114
  Serious: Yes (Hospitalization, Other)
  Sender: PFIZER
  Company Number: DE-OPELLA-2024OHG033318

PATIENT
  Age: 40 Year
  Sex: Female
  Weight: 84 kg

DRUGS (23)
  1. APIXABAN [Suspect]
     Active Substance: APIXABAN
     Dosage: UNK
  2. AZITHROMYCIN [Suspect]
     Active Substance: AZITHROMYCIN
     Dosage: UNK
  3. CLINDAMYCIN PHOSPHATE [Suspect]
     Active Substance: CLINDAMYCIN PHOSPHATE
     Dosage: UNK
  4. ARIXTRA [Suspect]
     Active Substance: FONDAPARINUX SODIUM
     Dosage: UNK
  5. DOXYCYCLINE [Suspect]
     Active Substance: DOXYCYCLINE
     Dosage: UNK
  6. ACETAMINOPHEN [Suspect]
     Active Substance: ACETAMINOPHEN
     Dosage: UNK
  7. ACETYLCYSTEINE [Suspect]
     Active Substance: ACETYLCYSTEINE
     Dosage: UNK
  8. ARTICAINE HYDROCHLORIDE [Suspect]
     Active Substance: ARTICAINE HYDROCHLORIDE
     Dosage: UNK
  9. ENOXAPARIN SODIUM [Suspect]
     Active Substance: ENOXAPARIN SODIUM
     Indication: Asthma
     Dosage: UNK
  10. DUPIXENT [Suspect]
     Active Substance: DUPILUMAB
     Indication: Asthma
     Dosage: 2ND INJECTION ON LEFT UPPER ARM, 300 MG, QOW (SINGLE DOSE PREFILLED PEN
     Route: 058
     Dates: start: 20240711, end: 20240725
  11. COTRIM [Suspect]
     Active Substance: SULFAMETHOXAZOLE\TRIMETHOPRIM
     Dosage: UNK
  12. AMBROXOL HYDROCHLORIDE [Suspect]
     Active Substance: AMBROXOL HYDROCHLORIDE
     Dosage: UNK
  13. CIPROFLOXACIN HYDROCHLORIDE [Suspect]
     Active Substance: CIPROFLOXACIN HYDROCHLORIDE
     Dosage: UNK
  14. MORPHINE HYDROCHLORIDE [Suspect]
     Active Substance: MORPHINE HYDROCHLORIDE
     Dosage: UNK
  15. CODEINE SULFATE [Suspect]
     Active Substance: CODEINE SULFATE
     Dosage: UNK
  16. MCP [Suspect]
     Active Substance: METOCLOPRAMIDE HYDROCHLORIDE
     Dosage: UNK
  17. XYLOCAINE [Suspect]
     Active Substance: LIDOCAINE HYDROCHLORIDE
     Dosage: UNK
  18. PENICILLIN G [Suspect]
     Active Substance: PENICILLIN G
     Dosage: UNK
  19. NOVALGIN (METAMIZOLE SODIUM) [Suspect]
     Active Substance: METAMIZOLE SODIUM
     Dosage: UNK
  20. NOSCAPINE [Suspect]
     Active Substance: NOSCAPINE
     Dosage: UNK
  21. BISOPROLOL FUMARATE [Suspect]
     Active Substance: BISOPROLOL FUMARATE
     Dosage: UNK
  22. NIFEDIPINE [Suspect]
     Active Substance: NIFEDIPINE
     Dosage: UNK
  23. ARTICAINE HYDROCHLORIDE\EPINEPHRINE HYDROCHLORIDE [Suspect]
     Active Substance: ARTICAINE HYDROCHLORIDE\EPINEPHRINE HYDROCHLORIDE
     Dosage: UNK

REACTIONS (25)
  - Autoimmune thyroiditis [Unknown]
  - Sinobronchitis [Unknown]
  - Nasal polyps [Unknown]
  - Flushing [Recovered/Resolved]
  - Hypertension [Unknown]
  - Allergic sinusitis [Unknown]
  - Hypersensitivity [Unknown]
  - Erythema [Unknown]
  - Cough [Unknown]
  - Pruritus [Unknown]
  - Lung disorder [Unknown]
  - Osteoporosis [Unknown]
  - Asthma [Unknown]
  - Dyspnoea [Unknown]
  - Leukocytosis [Unknown]
  - Dyspepsia [Unknown]
  - Obesity [Unknown]
  - Drug intolerance [Unknown]
  - Tachycardia [Unknown]
  - Nausea [Unknown]
  - Anaphylactic reaction [Unknown]
  - Eczema [Unknown]
  - Condition aggravated [Unknown]
  - Erythema [Unknown]
  - Pneumonitis [Unknown]

NARRATIVE: CASE EVENT DATE: 20240701
